FAERS Safety Report 16525000 (Version 3)
Quarter: 2019Q3

REPORT INFORMATION
  Report Type: Spontaneous
  Country: PT (occurrence: PT)
  Receive Date: 20190703
  Receipt Date: 20190726
  Transmission Date: 20191004
  Serious: Yes (Hospitalization, Disabling, Other)
  Sender: FDA-Public Use
  Company Number: PT-TERSERA THERAPEUTICS LLC-2019TRS001075

PATIENT

DRUGS (10)
  1. SIMVASTATIN. [Concomitant]
     Active Substance: SIMVASTATIN
     Indication: PRODUCT USED FOR UNKNOWN INDICATION
     Dosage: 20 MG, QD
     Route: 065
  2. ZOLADEX [Suspect]
     Active Substance: GOSERELIN ACETATE
     Indication: BREAST CANCER
     Dosage: 3.8 MILLIGRAM, EVERY 4 WEEKS
     Route: 042
     Dates: start: 20141201, end: 201712
  3. PERTUZUMAB. [Suspect]
     Active Substance: PERTUZUMAB
     Indication: BREAST CANCER
     Dosage: 1, EVERY 21 DAYS, BETWEEN 840-420 MG
     Route: 042
     Dates: start: 20180131
  4. HERCEPTIN [Suspect]
     Active Substance: TRASTUZUMAB
     Indication: BREAST CANCER
     Dosage: 6 MILLIGRAM/KILOGRAM, EVERY 3 WEEKS
     Route: 042
     Dates: start: 201409, end: 201508
  5. HERCEPTIN [Suspect]
     Active Substance: TRASTUZUMAB
     Dosage: 6 MILLIGRAM/KILOGRAM, EVERY 3 WEEKS
     Route: 042
     Dates: start: 20180131
  6. TAMOXIFEN [Suspect]
     Active Substance: TAMOXIFEN
     Indication: BREAST CANCER
     Dosage: 20.0 MG UNKNOWN
     Route: 048
     Dates: start: 20141201, end: 201712
  7. CYCLOPHOSPHAMIDE. [Suspect]
     Active Substance: CYCLOPHOSPHAMIDE
     Indication: BREAST CANCER
     Dosage: 600 MILLIGRAMS PER SQUARE METRE, 21 DAILY, 4 CYCLES
     Route: 042
     Dates: start: 20140604, end: 20141117
  8. DOXORUBICIN [Suspect]
     Active Substance: DOXORUBICIN
     Indication: BREAST CANCER
     Dosage: 60 MILLIGRAMS PER SQUARE METRE, 21 DAILY, 4 CYCLES
     Route: 042
     Dates: start: 20140604, end: 20141117
  9. DOCETAXEL. [Suspect]
     Active Substance: DOCETAXEL
     Dosage: UNK
     Route: 065
     Dates: start: 20180131
  10. DOCETAXEL. [Suspect]
     Active Substance: DOCETAXEL
     Indication: BREAST CANCER
     Dosage: 100 MILLIGRAMS PER SQUARE METRE, 21 - DAILY, 4 CYCLES
     Route: 042
     Dates: start: 20140604, end: 20141117

REACTIONS (6)
  - Left ventricular dysfunction [Unknown]
  - Febrile neutropenia [Recovered/Resolved]
  - Neuropathy peripheral [Recovered/Resolved]
  - Mucosal inflammation [Recovered/Resolved]
  - Cardiotoxicity [Recovered/Resolved]
  - Urinary tract infection [Recovered/Resolved]

NARRATIVE: CASE EVENT DATE: 201409
